FAERS Safety Report 8478524-X (Version None)
Quarter: 2012Q2

REPORT INFORMATION
  Report Type: 
  Country: None (occurrence: None)
  Receive Date: 20120615
  Receipt Date: 20120327
  Transmission Date: 20120825
  Serious: Yes (Hospitalization)
  Sender: FDA-Public Use
  Company Number: 2012SP017282

PATIENT
  Age: 46 Year
  Sex: Female
  Weight: 50 kg

DRUGS (6)
  1. PEGINTERFERON ALFA-2A [Suspect]
     Indication: HEPATITIS C
     Dosage: 180 MCG;QW;SC
     Route: 058
     Dates: start: 20111007, end: 20111129
  2. AMLOPIDIN [Concomitant]
  3. BOCEPREVIR (SCH-503034) [Suspect]
     Indication: HEPATITIS C
     Dosage: 800 MG;TID;PO
     Route: 048
     Dates: start: 20111007, end: 20111129
  4. PANTOPRAZOLE SODIUM [Concomitant]
  5. COPEGUS [Concomitant]
  6. RAMIPRIL [Concomitant]

REACTIONS (1)
  - ARTERIAL OCCLUSIVE DISEASE [None]
